FAERS Safety Report 4641495-8 (Version None)
Quarter: 2005Q2

REPORT INFORMATION
  Report Type: 
  Country: None (occurrence: None)
  Receive Date: 20050421
  Receipt Date: 20041105
  Transmission Date: 20051028
  Serious: Yes (Other)
  Sender: FDA-Public Use
  Company Number: FR-GLAXOSMITHKLINE-B0350945A

PATIENT
  Age: 73 Year
  Sex: Male
  Weight: 111 kg

DRUGS (6)
  1. AVANDIA [Suspect]
     Indication: DIABETES MELLITUS NON-INSULIN-DEPENDENT
     Dosage: 8MG PER DAY
     Dates: start: 20040422
  2. METFORMIN HCL [Suspect]
     Indication: DIABETES MELLITUS NON-INSULIN-DEPENDENT
     Route: 048
  3. PERMIXON [Concomitant]
  4. ELISOR [Concomitant]
  5. SELOKEN [Concomitant]
  6. ASASANTINE [Concomitant]
     Route: 048

REACTIONS (1)
  - MACROCYTOSIS [None]
